FAERS Safety Report 5534728-7 (Version None)
Quarter: 2007Q4

REPORT INFORMATION
  Report Type: 
  Country: None (occurrence: None)
  Receive Date: 20071205
  Receipt Date: 20071120
  Transmission Date: 20080405
  Serious: Yes (Life-Threatening, Hospitalization, Disabling)
  Sender: FDA-Public Use
  Company Number: DE-GENENTECH-246537

PATIENT
  Sex: Male
  Weight: 91 kg

DRUGS (6)
  1. AVASTIN [Suspect]
     Indication: METASTASES TO LUNG
     Dosage: UNK, 2/MONTH
     Dates: start: 20070514
  2. FLUOROURACIL [Suspect]
     Indication: METASTASES TO LUNG
     Dosage: UNK, 1/WEEK
     Dates: start: 20070514
  3. FOLINIC ACID [Suspect]
     Indication: METASTASES TO LUNG
     Dosage: UNK, 1/WEEK
     Dates: start: 20070514
  4. IRINOTECAN HCL [Suspect]
     Indication: METASTASES TO LUNG
     Dosage: UNK, 1/WEEK
     Dates: start: 20070514
  5. RISPERDAL [Concomitant]
     Indication: DRUG USE FOR UNKNOWN INDICATION
  6. BELOC-ZOK [Concomitant]
     Indication: DRUG USE FOR UNKNOWN INDICATION

REACTIONS (4)
  - HYPERTENSION [None]
  - LOWER GASTROINTESTINAL HAEMORRHAGE [None]
  - NECROSIS [None]
  - PNEUMONIA [None]
